FAERS Safety Report 4302759-0 (Version None)
Quarter: 2004Q1

REPORT INFORMATION
  Report Type: 
  Country: None (occurrence: None)
  Receive Date: 20040224
  Receipt Date: 20030428
  Transmission Date: 20041129
  Serious: No
  Sender: FDA-Public Use
  Company Number: US-BRISTOL-MYERS SQUIBB COMPANY-12257358

PATIENT
  Age: 30 Year
  Sex: Female

DRUGS (1)
  1. KENALOG [Suspect]
     Indication: ACNE
     Dosage: DURATION OF TREATMENT: EVERY 2-3 WEEKS FROM 1996-1998
     Route: 051
     Dates: start: 19960101, end: 19980101

REACTIONS (4)
  - INJECTION SITE REACTION [None]
  - INJECTION SITE URTICARIA [None]
  - SWELLING FACE [None]
  - URTICARIA [None]
